FAERS Safety Report 8602471-3 (Version None)
Quarter: 2012Q3

REPORT INFORMATION
  Report Type: 
  Country: None (occurrence: None)
  Receive Date: 20120817
  Receipt Date: 20120808
  Transmission Date: 20120928
  Serious: Yes (Hospitalization)
  Sender: FDA-Public Use
  Company Number: CA-ROCHE-1101392

PATIENT
  Sex: Female

DRUGS (1)
  1. XOLAIR [Suspect]
     Indication: ASTHMA
     Route: 058
     Dates: start: 20100201

REACTIONS (5)
  - PYREXIA [None]
  - LOWER RESPIRATORY TRACT INFECTION [None]
  - ASTHMA [None]
  - SPUTUM DISCOLOURED [None]
  - NASOPHARYNGITIS [None]
